FAERS Safety Report 11773620 (Version 1)
Quarter: 2015Q4

REPORT INFORMATION
  Report Type: Report from Study
  Country: US (occurrence: US)
  Receive Date: 20151124
  Receipt Date: 20151124
  Transmission Date: 20160304
  Serious: No
  Sender: FDA-Public Use
  Company Number: PHEH2014US009323

PATIENT
  Age: 26 Year
  Sex: Female
  Weight: 61.22 kg

DRUGS (3)
  1. GILENYA [Suspect]
     Active Substance: FINGOLIMOD HYDROCHLORIDE
     Dosage: 0.5 MG, QOD
     Route: 048
  2. GILENYA [Suspect]
     Active Substance: FINGOLIMOD HYDROCHLORIDE
     Indication: RELAPSING-REMITTING MULTIPLE SCLEROSIS
     Dosage: 0.5 MG, QD
     Route: 048
     Dates: start: 201105, end: 20140101
  3. GILENYA [Suspect]
     Active Substance: FINGOLIMOD HYDROCHLORIDE
     Dosage: 0.5 MG, Q72H
     Route: 048

REACTIONS (8)
  - Gait disturbance [Unknown]
  - Multiple sclerosis relapse [Unknown]
  - Normal newborn [Unknown]
  - Insomnia [Unknown]
  - Visual impairment [Unknown]
  - Maternal exposure before pregnancy [Not Recovered/Not Resolved]
  - Visual acuity reduced [Unknown]
  - Prescribed underdose [Unknown]

NARRATIVE: CASE EVENT DATE: 201206
